FAERS Safety Report 4636472-7 (Version None)
Quarter: 2005Q2

REPORT INFORMATION
  Report Type: 
  Country: None (occurrence: None)
  Receive Date: 20050413
  Receipt Date: 20050413
  Transmission Date: 20051028
  Serious: Yes (Hospitalization)
  Sender: FDA-Public Use
  Company Number: None

PATIENT
  Age: 59 Year
  Sex: Male
  Weight: 94.3 kg

DRUGS (19)
  1. MEPERIDINE [Suspect]
     Dosage: 100 MG, Q4H IV PUSH
     Route: 042
  2. HUMULIN R [Concomitant]
  3. HEPARIN [Concomitant]
  4. DIPHENHYDRAMINE HCL [Concomitant]
  5. MEPERIDINE HCL [Concomitant]
  6. FENTANYL CITRATE [Concomitant]
  7. TRAZODONE HCL [Concomitant]
  8. THERAPEUTIC VITAMIN W./MIN TAB [Concomitant]
  9. SIMVASTATIN [Concomitant]
  10. OMEPRAZOLE [Concomitant]
  11. MORPHINE [Concomitant]
  12. METOPROLOL TARTRATE [Concomitant]
  13. GABAPENTIN [Concomitant]
  14. FUROSEMIDE [Concomitant]
  15. CLONAZEPAM [Concomitant]
  16. ACETAMINOPHEN [Concomitant]
  17. POTASSIUM CHLORIDE [Concomitant]
  18. VANCOMYCIN [Concomitant]
  19. HUMULIN N [Concomitant]

REACTIONS (1)
  - DYSPNOEA [None]
